FAERS Safety Report 6399817-6 (Version None)
Quarter: 2009Q4

REPORT INFORMATION
  Report Type: 
  Country: None (occurrence: None)
  Receive Date: 20091014
  Receipt Date: 20091006
  Transmission Date: 20100525
  Serious: Yes (Disabling)
  Sender: FDA-Public Use
  Company Number: US-KINGPHARMUSA00001-K200901247

PATIENT
  Sex: Male
  Weight: 114.74 kg

DRUGS (1)
  1. LEVOXYL [Suspect]
     Indication: HYPOTHYROIDISM
     Dosage: 175 MCG, QD
     Route: 048
     Dates: start: 19780101

REACTIONS (2)
  - MYALGIA [None]
  - TREMOR [None]
